FAERS Safety Report 10204366 (Version 2)
Quarter: 2014Q4

REPORT INFORMATION
  Report Type: Report from Study
  Country: BR (occurrence: BR)
  Receive Date: 20140529
  Receipt Date: 20141007
  Transmission Date: 20150528
  Serious: Yes (Other)
  Sender: FDA-Public Use
  Company Number: BR-ABBVIE-14P-020-1240307-00

PATIENT
  Sex: Female
  Weight: 62 kg

DRUGS (4)
  1. SELENE (CYPROTERONE ACETATE + ETHINYLESTRDIOL) [Concomitant]
     Indication: CONTRACEPTION
  2. MELOXICAM. [Concomitant]
     Active Substance: MELOXICAM
     Indication: PRODUCT USED FOR UNKNOWN INDICATION
     Dates: start: 20131201
  3. PURAN [Concomitant]
     Active Substance: LEVOTHYROXINE SODIUM
     Indication: HYPOTHYROIDISM
     Dosage: IN THE MORNING, AT FASTING
  4. HUMIRA [Suspect]
     Active Substance: ADALIMUMAB
     Indication: ANKYLOSING SPONDYLITIS
     Dosage: LESS THAN A MONTH
     Route: 058
     Dates: start: 20140218

REACTIONS (2)
  - Varicose vein [Unknown]
  - Venous occlusion [Unknown]
